FAERS Safety Report 21490239 (Version 4)
Quarter: 2024Q4

REPORT INFORMATION
  Report Type: Report from Study
  Country: DE (occurrence: DE)
  Receive Date: 20221021
  Receipt Date: 20241105
  Transmission Date: 20250115
  Serious: No
  Sender: ROCHE
  Company Number: DE-ROCHE-3076515

PATIENT
  Age: 43 Year
  Sex: Female

DRUGS (2)
  1. OCREVUS [Suspect]
     Active Substance: OCRELIZUMAB
     Indication: Relapsing-remitting multiple sclerosis
     Dosage: 300 MG AT DAY 0 AND 15, THEN 600 MG EVERY 6 MONTH,
     Route: 042
     Dates: start: 20220222
  2. OCREVUS [Suspect]
     Active Substance: OCRELIZUMAB
     Dosage: 300 MG AT DAY 0 AND 15, THEN 600 MG EVERY 6 MONTH,
     Route: 042

REACTIONS (9)
  - Fatigue [Recovered/Resolved]
  - Nausea [Unknown]
  - Blood iron decreased [Recovered/Resolved]
  - COVID-19 [Recovered/Resolved]
  - Insomnia [Recovered/Resolved]
  - Skin disorder [Not Recovered/Not Resolved]
  - Injection site pain [Recovered/Resolved]
  - Injection site swelling [Recovered/Resolved]
  - Rosacea [Recovered/Resolved]

NARRATIVE: CASE EVENT DATE: 20220222
